FAERS Safety Report 8794713 (Version 2)
Quarter: 2013Q4

REPORT INFORMATION
  Report Type: Spontaneous
  Country: US (occurrence: US)
  Receive Date: 20120917
  Receipt Date: 20131101
  Transmission Date: 20140711
  Serious: No
  Sender: FDA-Public Use
  Company Number: US-009507513-1209USA005544

PATIENT
  Sex: Female

DRUGS (5)
  1. PEGINTRON [Suspect]
     Indication: HEPATITIS C
     Dosage: 150 MICROGRAM, QW
     Route: 058
     Dates: start: 20120510
  2. RIBASPHERE [Suspect]
     Route: 048
  3. POTASSIUM (UNSPECIFIED) [Concomitant]
  4. ASCORBIC ACID [Concomitant]
  5. OMEPRAZOLE [Concomitant]

REACTIONS (2)
  - Urinary tract infection [Recovered/Resolved]
  - Alopecia [Unknown]
